FAERS Safety Report 6806020-1 (Version None)
Quarter: 2010Q2

REPORT INFORMATION
  Report Type: 
  Country: None (occurrence: None)
  Receive Date: 20100629
  Receipt Date: 20071210
  Transmission Date: 20101027
  Serious: No
  Sender: FDA-Public Use
  Company Number: US-PFIZER INC-2007092017

PATIENT
  Sex: Male
  Weight: 90.7 kg

DRUGS (9)
  1. VIAGRA [Suspect]
     Indication: PROSTATE CANCER
     Dosage: 3 EVERY 1 WEEKS
     Dates: start: 20070601
  2. VIAGRA [Suspect]
     Indication: PROSTATECTOMY
  3. DIAZIDE [Concomitant]
     Indication: MENIERE'S DISEASE
  4. COZAAR [Concomitant]
     Indication: HYPERTENSION
  5. ZOCOR [Concomitant]
     Indication: BLOOD CHOLESTEROL INCREASED
  6. POTASSIUM [Concomitant]
  7. ZYRTEC [Concomitant]
     Indication: SEASONAL ALLERGY
  8. NASONEX [Concomitant]
     Indication: SEASONAL ALLERGY
  9. ALLERGENS [Concomitant]
     Indication: SEASONAL ALLERGY

REACTIONS (3)
  - ERYTHEMA [None]
  - FEELING HOT [None]
  - FLUSHING [None]
